FAERS Safety Report 6371569-5 (Version None)
Quarter: 2009Q3

REPORT INFORMATION
  Report Type: 
  Country: None (occurrence: None)
  Receive Date: 20090923
  Receipt Date: 20071121
  Transmission Date: 20100115
  Serious: No
  Sender: FDA-Public Use
  Company Number: US-ASTRAZENECA-2007UW18088

PATIENT
  Age: 601 Month
  Sex: Male
  Weight: 124.7 kg

DRUGS (24)
  1. SEROQUEL [Suspect]
     Indication: DEPRESSION
     Route: 048
     Dates: start: 20010212, end: 20060101
  2. SEROQUEL [Suspect]
     Route: 048
     Dates: start: 20010314
  3. AMBIEN CR [Concomitant]
     Route: 048
  4. LANTUS [Concomitant]
     Dosage: 60 - 90 UNITS IN THE EVENING
     Route: 058
  5. HUMALOG [Concomitant]
     Dosage: 8 - 10  UNITS BEFORE BREAKFAST AND 12-15 UNITS BEFORE LUNCH
     Route: 065
  6. AVANDIA [Concomitant]
     Route: 048
  7. GLUCOTROL XL [Concomitant]
     Route: 048
  8. WELLBUTRIN [Concomitant]
     Route: 048
  9. LIPITOR [Concomitant]
     Dosage: 20 - 80 MG DAILY
     Route: 048
  10. TRICOR [Concomitant]
     Dosage: 145 - 160 MG
     Route: 048
  11. LEVITRA [Concomitant]
     Route: 065
  12. METFORMIN HYDROCHLORIDE [Concomitant]
     Dosage: 500 - 1000 MG TWO TIMES A DAY BEFORE MEAL
     Route: 048
  13. ACTOS [Concomitant]
     Route: 048
  14. SIMVASTATIN [Concomitant]
     Dosage: 40 - 80 MG DAILY
     Route: 048
  15. LOVAZA [Concomitant]
     Dosage: 4 CAPSULES DAILY
     Route: 048
  16. LUNESTA [Concomitant]
     Route: 048
  17. CHANTIX [Concomitant]
     Route: 065
  18. CARVEDILOL [Concomitant]
     Route: 048
  19. VIAGRA [Concomitant]
     Route: 048
  20. ZYRTEC [Concomitant]
     Route: 048
  21. HYZAAR [Concomitant]
     Dosage: 100/25 MG DAILY
     Route: 048
  22. GLIMEPIRIDE [Concomitant]
     Route: 048
  23. HYDROCODONE BITARTRATE AND ACETAMINOPHEN [Concomitant]
     Indication: PAIN
     Dosage: 7.5/75 - 7.5/500 MG
     Route: 048
  24. RYTHMOL [Concomitant]
     Dosage: 300-450 MG
     Route: 048

REACTIONS (8)
  - ABDOMINAL PAIN [None]
  - COUGH [None]
  - ERECTILE DYSFUNCTION [None]
  - INFLAMMATION [None]
  - PULMONARY CONGESTION [None]
  - SINUS OPERATION [None]
  - TYPE 2 DIABETES MELLITUS [None]
  - WEIGHT INCREASED [None]
